FAERS Safety Report 5525454-9 (Version None)
Quarter: 2007Q4

REPORT INFORMATION
  Report Type: 
  Country: None (occurrence: None)
  Receive Date: 20071120
  Receipt Date: 20071120
  Transmission Date: 20080405
  Serious: Yes (Life-Threatening, Hospitalization)
  Sender: FDA-Public Use
  Company Number: None

PATIENT
  Age: 56 Year
  Sex: Male

DRUGS (9)
  1. ENOXAPARIN 40MG, 100MG [Suspect]
     Indication: DEEP VEIN THROMBOSIS
     Dosage: 100MG BID SQ
     Route: 058
     Dates: start: 20070917, end: 20070922
  2. HEPARIN [Suspect]
     Indication: DEEP VEIN THROMBOSIS
     Dosage: 17.5 UNITS/HR CONTINUOUS IV DRIP
     Route: 041
     Dates: start: 20070922, end: 20070925
  3. ACETAZOLAMIDE [Concomitant]
  4. ASPIRIN [Concomitant]
  5. LASIX [Concomitant]
  6. CARBOPLATIN [Concomitant]
  7. APREPITANT [Concomitant]
  8. LISINOPRIL [Concomitant]
  9. DIGOXIN [Concomitant]

REACTIONS (1)
  - HEPARIN-INDUCED THROMBOCYTOPENIA [None]
